FAERS Safety Report 17129140 (Version 1)
Quarter: 2019Q4

REPORT INFORMATION
  Report Type: Spontaneous
  Country: US (occurrence: US)
  Receive Date: 20191208
  Receipt Date: 20191208
  Transmission Date: 20200122
  Serious: Yes (Other)
  Sender: FDA-Public Use
  Company Number: None

PATIENT
  Age: 66 Year
  Sex: Male
  Weight: 83.25 kg

DRUGS (5)
  1. DAILY VITAMIN [Concomitant]
     Active Substance: VITAMINS
  2. ATORVASTATIN [Concomitant]
     Active Substance: ATORVASTATIN
  3. OLMESARTAN MEDOXOMIL 40MG TABLETS [Suspect]
     Active Substance: OLMESARTAN MEDOXOMIL
     Indication: HYPERTENSION
     Dosage: ?          QUANTITY:1 TABLET(S);?
     Route: 048
     Dates: start: 20191126, end: 20191208
  4. OLMESARTAN MODOXOMIL [Concomitant]
  5. COENZYME Q10 [Concomitant]
     Active Substance: UBIDECARENONE

REACTIONS (3)
  - Product substitution issue [None]
  - Product quality issue [None]
  - Blood pressure inadequately controlled [None]

NARRATIVE: CASE EVENT DATE: 20191126
